FAERS Safety Report 9670986 (Version 1)
Quarter: 2013Q4

REPORT INFORMATION
  Report Type: Spontaneous
  Country: US (occurrence: None)
  Receive Date: 20131105
  Receipt Date: 20131105
  Transmission Date: 20140711
  Serious: Yes (Disabling)
  Sender: FDA-Public Use
  Company Number: None

PATIENT
  Age: 37 Year
  Sex: Male
  Weight: 117.94 kg

DRUGS (1)
  1. CLOTRIMAZOLE TROCHE [Suspect]
     Indication: FUNGAL INFECTION
     Route: 048
     Dates: start: 20120605, end: 20131103

REACTIONS (2)
  - Drug ineffective [None]
  - Product odour abnormal [None]
